FAERS Safety Report 6851874-6 (Version None)
Quarter: 2010Q3

REPORT INFORMATION
  Report Type: 
  Country: None (occurrence: None)
  Receive Date: 20100717
  Receipt Date: 20071030
  Transmission Date: 20110219
  Serious: No
  Sender: FDA-Public Use
  Company Number: US-PFIZER INC-2007093771

PATIENT
  Sex: Female
  Weight: 132.72 kg

DRUGS (6)
  1. CHANTIX [Suspect]
     Indication: SMOKING CESSATION THERAPY
     Dates: start: 20070701
  2. REQUIP [Concomitant]
     Indication: RESTLESS LEGS SYNDROME
  3. ANTIHYPERTENSIVES [Concomitant]
     Indication: HYPERTENSION
  4. CHOLESTEROL- AND TRIGLYCERIDE REDUCERS [Concomitant]
     Indication: BLOOD CHOLESTEROL INCREASED
  5. DRUG, UNSPECIFIED [Concomitant]
     Indication: ARTHRITIS
  6. DIURETICS [Concomitant]

REACTIONS (4)
  - INSOMNIA [None]
  - NAUSEA [None]
  - NIGHTMARE [None]
  - RESTLESS LEGS SYNDROME [None]
